FAERS Safety Report 10185013 (Version 1)
Quarter: 2014Q2

REPORT INFORMATION
  Report Type: Spontaneous
  Country: US (occurrence: None)
  Receive Date: 20140520
  Receipt Date: 20140520
  Transmission Date: 20141212
  Serious: Yes (Hospitalization)
  Sender: FDA-Public Use
  Company Number: None

PATIENT
  Age: 77 Year
  Sex: Female

DRUGS (8)
  1. FAMOTIDINE [Suspect]
     Indication: PROPHYLAXIS
     Route: 042
     Dates: start: 20121120, end: 20121120
  2. DALTEPARIN [Concomitant]
  3. CITALOPRAM [Concomitant]
  4. DOCUSATE [Concomitant]
  5. LEVOTHYROXINE [Concomitant]
  6. ONDANSETRON [Concomitant]
  7. OXYCODONE-ACETAMINOPHEN [Concomitant]
  8. PRAVASTATIN [Concomitant]

REACTIONS (1)
  - Delirium [None]
